FAERS Safety Report 7687921-1 (Version None)
Quarter: 2011Q3

REPORT INFORMATION
  Report Type: 
  Country: None (occurrence: None)
  Receive Date: 20110817
  Receipt Date: 20100317
  Transmission Date: 20111222
  Serious: No
  Sender: FDA-Public Use
  Company Number: US-BAYER-201017566NA

PATIENT
  Sex: Female

DRUGS (2)
  1. CAFFEINE [Concomitant]
  2. MIRENA [Suspect]
     Dosage: 20 MCG/24HR, UNK
     Route: 015
     Dates: start: 20080701

REACTIONS (3)
  - HYPERAESTHESIA [None]
  - FEELING HOT [None]
  - UTERINE PAIN [None]
